FAERS Safety Report 7490602-0 (Version None)
Quarter: 2011Q2

REPORT INFORMATION
  Report Type: 
  Country: None (occurrence: None)
  Receive Date: 20110519
  Receipt Date: 20110512
  Transmission Date: 20111010
  Serious: Yes (Death, Hospitalization)
  Sender: FDA-Public Use
  Company Number: MX-BRISTOL-MYERS SQUIBB COMPANY-15746795

PATIENT
  Age: 74 Year
  Sex: Male

DRUGS (2)
  1. INSULIN [Concomitant]
     Indication: TYPE 2 DIABETES MELLITUS
     Route: 058
     Dates: end: 20110409
  2. IRBESARTAN [Suspect]
     Indication: HYPERTENSION
     Dosage: 1DF:1TAB/D
     Route: 048
     Dates: end: 20110409

REACTIONS (3)
  - GASTRIC CANCER [None]
  - DEATH [None]
  - PROSTATE CANCER [None]
